FAERS Safety Report 8419013-8 (Version None)
Quarter: 2012Q2

REPORT INFORMATION
  Report Type: 
  Country: None (occurrence: None)
  Receive Date: 20120607
  Receipt Date: 20120530
  Transmission Date: 20120825
  Serious: Yes (Hospitalization)
  Sender: FDA-Public Use
  Company Number: PHHY2012JP020158

PATIENT
  Sex: Female
  Weight: 44 kg

DRUGS (7)
  1. TRANEXAMIC ACID [Concomitant]
     Dosage: 500 MG, UNK
     Route: 048
     Dates: start: 20110809, end: 20110812
  2. PAROXETINE HCL [Concomitant]
     Dosage: 1.5 MG, UNK
     Route: 048
     Dates: start: 20050101, end: 20110814
  3. TEGRETOL [Suspect]
     Indication: EPILEPSY
     Dosage: 300 MG DAILY (100 MG IN MORNING AND 200 MG IN EVENING)
     Route: 048
     Dates: start: 20110804, end: 20110814
  4. CEFCAPENE PIVOXIL HYDROCHLORIDE [Concomitant]
     Dosage: 300 MG, UNK
     Route: 048
     Dates: start: 20110812, end: 20110814
  5. FLUNITRAZEPAM [Concomitant]
     Dosage: 1 MG, UNK
     Route: 048
     Dates: start: 20110401, end: 20110814
  6. RISPERIDONE [Concomitant]
     Dosage: 2.5 MG, UNK
     Route: 048
     Dates: start: 20090101, end: 20110814
  7. AMBROXOL HYDROCHLORIDE [Concomitant]
     Dosage: 22.5 MG, UNK
     Route: 048
     Dates: start: 20110809, end: 20110812

REACTIONS (9)
  - PROTEIN-LOSING GASTROENTEROPATHY [None]
  - PROTEINURIA [None]
  - DIARRHOEA [None]
  - PYREXIA [None]
  - IMMUNODEFICIENCY [None]
  - HYPOALBUMINAEMIA [None]
  - HYPOPROTEINAEMIA [None]
  - VOMITING [None]
  - GENERALISED ERYTHEMA [None]
